FAERS Safety Report 8573866-1 (Version None)
Quarter: 2012Q3

REPORT INFORMATION
  Report Type: 
  Country: None (occurrence: None)
  Receive Date: 20120806
  Receipt Date: 20120123
  Transmission Date: 20120928
  Serious: No
  Sender: FDA-Public Use
  Company Number: US-GLAXOSMITHKLINE-A0962703A

PATIENT
  Age: 71 Year
  Sex: Female
  Weight: 63.6 kg

DRUGS (7)
  1. CRESTOR [Concomitant]
     Dosage: 10MG PER DAY
  2. OMEPRAZOLE [Concomitant]
     Dosage: 20MG PER DAY
  3. SOTALOL HYDROCHLORIDE [Concomitant]
     Dosage: 80MG TWICE PER DAY
  4. FLUTICASONE PROPIONATE [Suspect]
     Route: 055
     Dates: start: 20091101, end: 20110601
  5. AMLODIPINE [Concomitant]
     Dosage: 10MG PER DAY
  6. FLUTICASONE PROPIONATE [Suspect]
     Indication: DYSPNOEA
     Dosage: 2PUFF TWICE PER DAY
     Route: 055
     Dates: start: 20110101
  7. SYNTHROID [Concomitant]
     Dosage: 137MCG PER DAY

REACTIONS (3)
  - PRODUCT QUALITY ISSUE [None]
  - DYSPNOEA [None]
  - DRUG INEFFECTIVE [None]
